FAERS Safety Report 7069831-6 (Version None)
Quarter: 2010Q4

REPORT INFORMATION
  Report Type: 
  Country: None (occurrence: None)
  Receive Date: 20101028
  Receipt Date: 20100623
  Transmission Date: 20110411
  Serious: Yes (Other)
  Sender: FDA-Public Use
  Company Number: US-WYE-H15866810

PATIENT
  Sex: Female

DRUGS (4)
  1. ADVIL [Suspect]
     Indication: ARTHRITIS
     Dosage: 2 TABLETS EVERY 4 TO 6 HOURS AS NEEDED
     Route: 048
  2. PREMPHASE 14/14 [Concomitant]
     Indication: HORMONE THERAPY
     Dosage: 0.625MG/5MG, FREQUENCY UNKNOWN
     Route: 048
  3. CYCLOBENZAPRINE [Concomitant]
     Indication: PRODUCT USED FOR UNKNOWN INDICATION
     Dosage: UNKNOWN
     Route: 048
  4. PREMARIN [Concomitant]
     Indication: HORMONE THERAPY
     Dosage: UNKNOWN
     Route: 048

REACTIONS (1)
  - ANAPHYLACTIC REACTION [None]
